FAERS Safety Report 7608172-2 (Version None)
Quarter: 2011Q3

REPORT INFORMATION
  Report Type: 
  Country: None (occurrence: None)
  Receive Date: 20110706
  Receipt Date: 20110620
  Transmission Date: 20111222
  Serious: Yes (Hospitalization)
  Sender: FDA-Public Use
  Company Number: 2011060177

PATIENT
  Age: 50 Year
  Sex: Male

DRUGS (7)
  1. MIRTAZAPINE [Suspect]
     Indication: SUICIDE ATTEMPT
     Dosage: (735 MG, INTAKE NOT ASSURED), ORAL
     Route: 048
     Dates: start: 20110517, end: 20110517
  2. TORSEMIDE [Suspect]
     Indication: SUICIDE ATTEMPT
     Dosage: (300 MG, INTAKE NOT ASSURED), ORAL
     Route: 048
     Dates: start: 20110517, end: 20110517
  3. METOPROLOL TARTRATE [Suspect]
     Indication: SUICIDE ATTEMPT
     Dosage: (950 MG, INTAKE NOT ASSURED), ORAL
     Route: 048
     Dates: start: 20110517, end: 20110517
  4. DIGITOXIN TAB [Suspect]
     Indication: SUICIDE ATTEMPT
     Dosage: (2.1 MG, DRUG INTAKE NOT ASSURED), ORAL
     Route: 048
     Dates: start: 20110517, end: 20110517
  5. LEVOTHYROXINE SODIUM [Suspect]
     Indication: SUICIDE ATTEMPT
     Dosage: (2500 MCG, DRUG INTAKE NOT ASSURED), ORAL
     Route: 048
     Dates: start: 20110517, end: 20110517
  6. LISINOPRIL [Suspect]
     Indication: SUICIDE ATTEMPT
     Dosage: (600 MG, INTAKE NOT ASSURED), ORAL
     Route: 048
     Dates: start: 20110517, end: 20110517
  7. MARCUMAR [Suspect]
     Indication: SUICIDE ATTEMPT
     Dosage: (75 MG, DRUG INTAKE NOT ASSURED), ORAL
     Route: 048
     Dates: start: 20110517, end: 20110517

REACTIONS (7)
  - HYPOTENSION [None]
  - BRADYCARDIA [None]
  - TACHYARRHYTHMIA [None]
  - DELIRIUM [None]
  - MULTIPLE DRUG OVERDOSE INTENTIONAL [None]
  - SUICIDE ATTEMPT [None]
  - SOMNOLENCE [None]
